FAERS Safety Report 26195374 (Version 1)
Quarter: 2025Q4

REPORT INFORMATION
  Report Type: Spontaneous
  Country: US (occurrence: US)
  Receive Date: 20251224
  Receipt Date: 20251224
  Transmission Date: 20260117
  Serious: Yes (Death, Hospitalization)
  Sender: TEVA
  Company Number: US-TEVA-VS-3404703

PATIENT
  Age: 49 Year
  Sex: Male

DRUGS (3)
  1. CISPLATIN [Suspect]
     Active Substance: CISPLATIN
     Indication: Squamous cell carcinoma of the tongue
     Route: 065
     Dates: end: 202304
  2. AMPHOTERICIN B [Suspect]
     Active Substance: AMPHOTERICIN B
     Indication: Meningitis cryptococcal
     Route: 065
  3. FLUCYTOSINE [Suspect]
     Active Substance: FLUCYTOSINE
     Indication: Meningitis cryptococcal
     Route: 065

REACTIONS (9)
  - Meningitis cryptococcal [Fatal]
  - Metabolic encephalopathy [Fatal]
  - Pneumonia [Fatal]
  - Respiratory failure [Fatal]
  - Pleural effusion [Fatal]
  - Multiple organ dysfunction syndrome [Fatal]
  - Acute kidney injury [Fatal]
  - Sepsis [Fatal]
  - Drug ineffective [Fatal]
